FAERS Safety Report 6025448-3 (Version None)
Quarter: 2008Q4

REPORT INFORMATION
  Report Type: 
  Country: None (occurrence: None)
  Receive Date: 20081229
  Receipt Date: 20081229
  Transmission Date: 20090506
  Serious: Yes (Other)
  Sender: FDA-Public Use
  Company Number: None

PATIENT
  Age: 7 Year
  Sex: Female
  Weight: 19.9583 kg

DRUGS (2)
  1. SINGULAIR [Suspect]
     Indication: ASTHMA
     Dosage: 5 MG ONCE DAILY PO
     Route: 048
     Dates: start: 20081105, end: 20081224
  2. SINGULAIR [Suspect]
     Indication: MULTIPLE ALLERGIES
     Dosage: 5 MG ONCE DAILY PO
     Route: 048
     Dates: start: 20081105, end: 20081224

REACTIONS (10)
  - ABNORMAL BEHAVIOUR [None]
  - AGGRESSION [None]
  - ARTHRALGIA [None]
  - CRYING [None]
  - MORBID THOUGHTS [None]
  - OBSESSIVE-COMPULSIVE DISORDER [None]
  - PANIC REACTION [None]
  - SPEECH DISORDER [None]
  - SUICIDAL IDEATION [None]
  - THINKING ABNORMAL [None]
